FAERS Safety Report 11723955 (Version 1)
Quarter: 2015Q4

REPORT INFORMATION
  Report Type: Spontaneous
  Country: HR (occurrence: HR)
  Receive Date: 20151111
  Receipt Date: 20151111
  Transmission Date: 20160304
  Serious: Yes (Other)
  Sender: FDA-Public Use
  Company Number: HR-BAXALTA-2015BLT002618

PATIENT
  Sex: Male

DRUGS (3)
  1. URSOFALK [Concomitant]
     Active Substance: URSODIOL
     Indication: LIVER INJURY
     Dosage: 500 MG, UNK
     Route: 048
  2. SOLU-MEDROL [Suspect]
     Active Substance: METHYLPREDNISOLONE SODIUM SUCCINATE
     Indication: PREMEDICATION
     Dosage: 40 MG, UNK
     Route: 042
  3. KIOVIG [Suspect]
     Active Substance: HUMAN IMMUNOGLOBULIN G
     Indication: HYPOGAMMAGLOBULINAEMIA
     Dosage: 20 G, UNK
     Route: 042
     Dates: start: 2007

REACTIONS (8)
  - Ageusia [Recovered/Resolved]
  - Transient ischaemic attack [Recovered/Resolved]
  - Neuropathy peripheral [Recovered/Resolved]
  - Loss of consciousness [Recovered/Resolved]
  - Paraesthesia [Recovered/Resolved]
  - Disorientation [Recovered/Resolved]
  - Amnesia [Recovered/Resolved]
  - Aggression [Recovered/Resolved]

NARRATIVE: CASE EVENT DATE: 2015
